FAERS Safety Report 19855240 (Version 1)
Quarter: 2021Q3

REPORT INFORMATION
  Report Type: Spontaneous
  Country: US (occurrence: US)
  Receive Date: 20210919
  Receipt Date: 20210919
  Transmission Date: 20211014
  Serious: Yes (Disabling)
  Sender: FDA-Public Use
  Company Number: None

PATIENT
  Age: 31 Year
  Sex: Male
  Weight: 90 kg

DRUGS (2)
  1. LEVOFLOXACIN. [Suspect]
     Active Substance: LEVOFLOXACIN
     Indication: PERITONSILLAR ABSCESS
     Dosage: QUANTITY:1 TABLET(S);?
     Route: 048
     Dates: start: 20210531, end: 20210601
  2. MEDROL [Concomitant]
     Active Substance: METHYLPREDNISOLONE

REACTIONS (4)
  - Ligament pain [None]
  - Tendonitis [None]
  - Arthralgia [None]
  - Nervous system disorder [None]

NARRATIVE: CASE EVENT DATE: 20210531
